FAERS Safety Report 4759317-3 (Version None)
Quarter: 2005Q3

REPORT INFORMATION
  Report Type: 
  Country: None (occurrence: None)
  Receive Date: 20050826
  Receipt Date: 20050616
  Transmission Date: 20060218
  Serious: Yes (Other)
  Sender: FDA-Public Use
  Company Number: 214074

PATIENT
  Age: 19 Year
  Sex: Male
  Weight: 99.8 kg

DRUGS (1)
  1. RAPTIVA [Suspect]
     Indication: PSORIASIS
     Dosage: 1 MG/KG 1/WEEK SUBCUTANEOUS
     Route: 058
     Dates: start: 20050225, end: 20050426

REACTIONS (4)
  - ARTHRALGIA [None]
  - ARTHRITIS BACTERIAL [None]
  - JOINT SWELLING [None]
  - MUSCLE INJURY [None]
